FAERS Safety Report 24655563 (Version 2)
Quarter: 2024Q4

REPORT INFORMATION
  Report Type: Spontaneous
  Country: US (occurrence: US)
  Receive Date: 20241123
  Receipt Date: 20241211
  Transmission Date: 20250115
  Serious: Yes (Other)
  Sender: ABBVIE
  Company Number: US-ABBVIE-6016553

PATIENT
  Sex: Male

DRUGS (1)
  1. PREDNISOLONE [Suspect]
     Active Substance: PREDNISOLONE
     Indication: Product used for unknown indication
     Dosage: 4 DROPS EVERY DAY
     Route: 047
     Dates: start: 20240927

REACTIONS (7)
  - Blindness transient [Unknown]
  - Eye swelling [Unknown]
  - Eye disorder [Unknown]
  - Lacrimation increased [Unknown]
  - Erythema of eyelid [Unknown]
  - Product quality issue [Unknown]
  - Product quality issue [Unknown]

NARRATIVE: CASE EVENT DATE: 20240901
